FAERS Safety Report 18542974 (Version 1)
Quarter: 2020Q4

REPORT INFORMATION
  Report Type: Spontaneous
  Country: GB (occurrence: GB)
  Receive Date: 20201125
  Receipt Date: 20201125
  Transmission Date: 20210114
  Serious: Yes (Death, Hospitalization, Other)
  Sender: FDA-Public Use
  Company Number: GB-AUROBINDO-AUR-APL-2011-05152

PATIENT
  Age: 24 Year
  Sex: Male

DRUGS (5)
  1. KETAMINE [Suspect]
     Active Substance: KETAMINE
     Indication: HEPATIC NECROSIS
     Dosage: UNK
     Route: 065
  2. ASPIRIN. [Suspect]
     Active Substance: ASPIRIN
     Indication: PRODUCT USED FOR UNKNOWN INDICATION
     Dosage: UNK
     Route: 065
  3. IBUPROFEN TABLETS [Suspect]
     Active Substance: IBUPROFEN
     Indication: PRODUCT USED FOR UNKNOWN INDICATION
     Dosage: UNK
     Route: 065
  4. PARACETAMOL TABLET [Interacting]
     Active Substance: ACETAMINOPHEN
     Indication: PRODUCT USED FOR UNKNOWN INDICATION
     Dosage: 100 DOSAGE FORM
     Route: 065
  5. FERROUS SULFATE. [Interacting]
     Active Substance: FERROUS SULFATE
     Indication: PRODUCT USED FOR UNKNOWN INDICATION
     Dosage: UNK
     Route: 065

REACTIONS (13)
  - Neurological symptom [Unknown]
  - Cholestasis [Unknown]
  - Hepatic steatosis [Unknown]
  - Aspergillus infection [Fatal]
  - Transplant rejection [Unknown]
  - Intentional overdose [Fatal]
  - Drug interaction [Unknown]
  - Septic embolus [Fatal]
  - Brain death [Fatal]
  - Completed suicide [Fatal]
  - Acute hepatic failure [Fatal]
  - Liver transplant [Unknown]
  - Histology abnormal [Unknown]
